FAERS Safety Report 9440233 (Version 1)
Quarter: 2013Q3

REPORT INFORMATION
  Report Type: Spontaneous
  Country: US (occurrence: US)
  Receive Date: 20130805
  Receipt Date: 20130805
  Transmission Date: 20140515
  Serious: Yes (Other)
  Sender: FDA-Public Use
  Company Number: PHEH2013US016155

PATIENT
  Sex: Female

DRUGS (7)
  1. DIOVAN HCT [Suspect]
     Dosage: UNK UKN, UNK
  2. DIOVAN HCT [Suspect]
     Dosage: 1 DF, UNK (320 MG VALS AND 25 MG HCTZ)
  3. VALSARTAN + HCT [Suspect]
     Dosage: 1 DF, UNK (320 MG VALS AND 25 MG HCTZ)
  4. ZYRTEC [Concomitant]
     Dosage: UNK UKN, UNK
  5. RESTORIL [Concomitant]
     Dosage: UNK UKN, UNK
  6. ATENOLOL [Concomitant]
     Dosage: UNK UKN, UNK
  7. WARFARIN [Concomitant]
     Dosage: UNK UKN, UNK

REACTIONS (7)
  - Pulmonary thrombosis [Unknown]
  - Memory impairment [Unknown]
  - Malaise [Unknown]
  - Visual impairment [Unknown]
  - Abdominal discomfort [Unknown]
  - Blood pressure abnormal [Unknown]
  - Headache [Unknown]
